FAERS Safety Report 14662341 (Version 1)
Quarter: 2018Q1

REPORT INFORMATION
  Report Type: Spontaneous
  Country: FR (occurrence: FR)
  Receive Date: 20180321
  Receipt Date: 20180321
  Transmission Date: 20180509
  Serious: Yes (Hospitalization)
  Sender: FDA-Public Use
  Company Number: FR-CIPLA LTD.-2018FR11609

PATIENT

DRUGS (2)
  1. ALIMTA [Suspect]
     Active Substance: PEMETREXED DISODIUM
     Indication: LUNG CARCINOMA CELL TYPE UNSPECIFIED STAGE IV
     Dosage: 500 MG/M2, CYCLICAL
     Route: 042
     Dates: start: 20160930, end: 20161024
  2. CARBOPLATIN. [Suspect]
     Active Substance: CARBOPLATIN
     Indication: LUNG CARCINOMA CELL TYPE UNSPECIFIED STAGE IV
     Dosage: 465 MG, CYCLICAL
     Route: 042
     Dates: start: 20160930, end: 20161024

REACTIONS (5)
  - Diarrhoea [Recovered/Resolved]
  - Renal impairment [Unknown]
  - Nausea [Recovered/Resolved]
  - Vomiting [Recovered/Resolved]
  - Haematotoxicity [Recovering/Resolving]

NARRATIVE: CASE EVENT DATE: 201610
